FAERS Safety Report 8987691 (Version 1)
Quarter: 2012Q4

REPORT INFORMATION
  Report Type: Report from Study
  Country: US (occurrence: US)
  Receive Date: 20121227
  Receipt Date: 20121227
  Transmission Date: 20130627
  Serious: Yes (Other)
  Sender: FDA-Public Use
  Company Number: US-PURDUE-USA-2012-0095576

PATIENT
  Age: 58 Year
  Sex: Male

DRUGS (1)
  1. OXYCONTIN (NDA 22-272) [Suspect]
     Indication: PAIN
     Dosage: 80 mg, tid
     Route: 048

REACTIONS (10)
  - Injury [Unknown]
  - Blood pressure increased [Recovered/Resolved]
  - Agitation [Recovered/Resolved]
  - Anxiety [Recovered/Resolved]
  - Pain [Recovered/Resolved]
  - Drug withdrawal syndrome [Unknown]
  - Tachycardia [Unknown]
  - Abdominal pain [Unknown]
  - Discomfort [Unknown]
  - Unevaluable event [Unknown]
